FAERS Safety Report 7770448-6 (Version None)
Quarter: 2011Q3

REPORT INFORMATION
  Report Type: 
  Country: None (occurrence: None)
  Receive Date: 20110922
  Receipt Date: 20100924
  Transmission Date: 20111222
  Serious: No
  Sender: FDA-Public Use
  Company Number: US-ASTRAZENECA-2010SE45177

PATIENT
  Age: 51 Year
  Sex: Female
  Weight: 104.3 kg

DRUGS (1)
  1. SEROQUEL XR [Suspect]
     Indication: INSOMNIA
     Route: 048
     Dates: start: 20100601

REACTIONS (4)
  - DRUG DOSE OMISSION [None]
  - SLEEP DISORDER [None]
  - CONSTIPATION [None]
  - DRY MOUTH [None]
